FAERS Safety Report 7641762-X (Version None)
Quarter: 2011Q3

REPORT INFORMATION
  Report Type: 
  Country: None (occurrence: None)
  Receive Date: 20110722
  Receipt Date: 20110713
  Transmission Date: 20111222
  Serious: Yes (Disabling, Other)
  Sender: FDA-Public Use
  Company Number: 2005-133162-NL

PATIENT
  Age: 37 Year
  Sex: Female
  Weight: 55 kg

DRUGS (1)
  1. IMPLANON [Suspect]
     Indication: CONTRACEPTION
     Dosage: 1 DF
     Dates: start: 20020201, end: 20020901

REACTIONS (9)
  - SENSORY LOSS [None]
  - ULNAR NERVE PALSY [None]
  - MUSCLE ATROPHY [None]
  - MUSCULAR WEAKNESS [None]
  - PARAESTHESIA [None]
  - SCAR [None]
  - FIBROSIS [None]
  - MENSTRUATION IRREGULAR [None]
  - BREAST DISCOMFORT [None]
